FAERS Safety Report 6095868-X (Version None)
Quarter: 2009Q1

REPORT INFORMATION
  Report Type: 
  Country: None (occurrence: None)
  Receive Date: 20090227
  Receipt Date: 20080702
  Transmission Date: 20090719
  Serious: No
  Sender: FDA-Public Use
  Company Number: A0735817A

PATIENT
  Age: 41 Year
  Sex: Female

DRUGS (3)
  1. LAMICTAL [Suspect]
     Indication: DEPRESSION
     Dosage: 50MG AT NIGHT
     Route: 048
     Dates: start: 20080609, end: 20080629
  2. DEPAKOTE [Concomitant]
  3. CYMBALTA [Concomitant]

REACTIONS (3)
  - DERMATITIS CONTACT [None]
  - LYMPHADENOPATHY [None]
  - RASH [None]
